FAERS Safety Report 21732461 (Version 2)
Quarter: 2024Q2

REPORT INFORMATION
  Report Type: Spontaneous
  Country: AU (occurrence: AU)
  Receive Date: 20221215
  Receipt Date: 20240410
  Transmission Date: 20240715
  Serious: Yes (Other)
  Sender: FDA-Public Use
  Company Number: AU-AMGEN-AUSSP2022213959

PATIENT

DRUGS (6)
  1. BEVACIZUMAB [Suspect]
     Active Substance: BEVACIZUMAB
     Indication: Glioblastoma
     Dosage: 5 MILLIGRAM/M2, Q2WK
     Route: 065
  2. BEVACIZUMAB [Suspect]
     Active Substance: BEVACIZUMAB
     Dosage: 10 MILLIGRAM/M2, Q2WK
     Route: 065
  3. BEVACIZUMAB [Suspect]
     Active Substance: BEVACIZUMAB
     Dosage: THEN SUBSEQUENTLY MAINTAINED AT 2-4 WEEKLY INTERVALS
     Route: 065
  4. TEMOZOLOMIDE [Concomitant]
     Active Substance: TEMOZOLOMIDE
     Indication: Glioblastoma
     Dosage: UNK
     Route: 065
  5. PROCARBAZINE [Concomitant]
     Active Substance: PROCARBAZINE
     Indication: Glioblastoma
     Dosage: UNK
     Route: 065
  6. LOMUSTINE [Concomitant]
     Active Substance: LOMUSTINE
     Indication: Glioblastoma
     Dosage: UNK
     Route: 065

REACTIONS (1)
  - Glioblastoma [Unknown]
